FAERS Safety Report 19665847 (Version 2)
Quarter: 2021Q4

REPORT INFORMATION
  Report Type: Spontaneous
  Country: US (occurrence: US)
  Receive Date: 20210806
  Receipt Date: 20211206
  Transmission Date: 20220304
  Serious: No
  Sender: FDA-Public Use
  Company Number: US-CELGENE-USA-20210707062

PATIENT
  Sex: Female

DRUGS (2)
  1. POMALYST [Suspect]
     Active Substance: POMALIDOMIDE
     Indication: Plasma cell myeloma
     Dosage: 4 MILLIGRAM
     Route: 048
     Dates: start: 20200807
  2. POMALYST [Suspect]
     Active Substance: POMALIDOMIDE
     Indication: Plasma cell myeloma in remission
     Dosage: 3 MILLIGRAM
     Route: 048
     Dates: start: 202010

REACTIONS (6)
  - Dry skin [Unknown]
  - Pain [Unknown]
  - Muscle spasms [Unknown]
  - Fatigue [Unknown]
  - Hypoaesthesia [Unknown]
  - Diarrhoea [Unknown]
